FAERS Safety Report 5782669-2 (Version None)
Quarter: 2008Q2

REPORT INFORMATION
  Report Type: 
  Country: None (occurrence: None)
  Receive Date: 20080619
  Receipt Date: 20070925
  Transmission Date: 20081010
  Serious: Yes (Other)
  Sender: FDA-Public Use
  Company Number: 2007US002029

PATIENT
  Age: 49 Year
  Sex: Female
  Weight: 60.8 kg

DRUGS (7)
  1. AMEVIVE [Suspect]
     Indication: PSORIASIS
     Dosage: UNK, UNK, IV NOS, UNK, UNK, INTRAMUSCULAR
     Route: 042
     Dates: start: 20030904, end: 20031120
  2. AMEVIVE [Suspect]
     Indication: PSORIASIS
     Dosage: UNK, UNK, IV NOS, UNK, UNK, INTRAMUSCULAR
     Route: 042
     Dates: start: 20040504, end: 20070925
  3. LIDEX (FLUOCINNONIDE) [Concomitant]
  4. FLUOCINONIDE [Concomitant]
  5. DOVONEX (CALCIPOTRIOL) [Concomitant]
  6. XANAX [Concomitant]
  7. TOPICORT [Concomitant]

REACTIONS (1)
  - BASAL CELL CARCINOMA [None]
